FAERS Safety Report 18962758 (Version 1)
Quarter: 2021Q1

REPORT INFORMATION
  Report Type: Spontaneous
  Country: US (occurrence: US)
  Receive Date: 20210303
  Receipt Date: 20210303
  Transmission Date: 20210420
  Serious: Yes (Hospitalization)
  Sender: FDA-Public Use
  Company Number: None

PATIENT
  Age: 34 Year
  Sex: Male
  Weight: 76.5 kg

DRUGS (1)
  1. FINASTERIDE. [Suspect]
     Active Substance: FINASTERIDE
     Indication: ALOPECIA
     Dosage: ?          QUANTITY:1 TABLET(S);?
     Route: 048
     Dates: start: 20200814, end: 20201005

REACTIONS (5)
  - Asthenia [None]
  - Sexual dysfunction [None]
  - Dizziness [None]
  - Blood testosterone decreased [None]
  - Libido decreased [None]

NARRATIVE: CASE EVENT DATE: 20201010
